FAERS Safety Report 7970261-0 (Version None)
Quarter: 2011Q4

REPORT INFORMATION
  Report Type: 
  Country: None (occurrence: None)
  Receive Date: 20111122
  Receipt Date: 20110728
  Transmission Date: 20120403
  Serious: Yes (Hospitalization, Other)
  Sender: FDA-Public Use
  Company Number: PHHY2011US59695

PATIENT
  Age: 33 Year
  Sex: Female

DRUGS (2)
  1. GILENYA [Suspect]
     Indication: MULTIPLE SCLEROSIS
     Dosage: 0.5 MG, QD, ORAL
     Route: 048
     Dates: start: 20110404
  2. BACTRIM (SULPHAMETHOXZOLE/TRIMETHOPRIM0 [Concomitant]

REACTIONS (5)
  - ERYTHEMA [None]
  - CELLULITIS [None]
  - INGROWN HAIR [None]
  - FEELING HOT [None]
  - PAIN [None]
